FAERS Safety Report 16577338 (Version 2)
Quarter: 2020Q1

REPORT INFORMATION
  Report Type: Report from Study
  Country: None (occurrence: US)
  Receive Date: 20190716
  Receipt Date: 20200218
  Transmission Date: 20200409
  Serious: Yes (Other)
  Sender: FDA-Public Use
  Company Number: US-ABBVIE-19K-163-2647298-00

PATIENT
  Sex: Male
  Weight: 85.81 kg

DRUGS (1)
  1. HUMIRA [Suspect]
     Active Substance: ADALIMUMAB
     Indication: CROHN^S DISEASE
     Route: 058

REACTIONS (7)
  - Dysphagia [Unknown]
  - Depression [Unknown]
  - Incorrect dose administered [Unknown]
  - Device issue [Unknown]
  - Vertebral osteophyte [Unknown]
  - Oesophageal obstruction [Unknown]
  - Dysphonia [Unknown]
